FAERS Safety Report 14117758 (Version 1)
Quarter: 2017Q4

REPORT INFORMATION
  Report Type: Report from Study
  Country: None (occurrence: BR)
  Receive Date: 20171023
  Receipt Date: 20171023
  Transmission Date: 20180321
  Serious: Yes (Hospitalization, Other)
  Sender: FDA-Public Use
  Company Number: BR-ABBVIE-15K-020-1458764-00

PATIENT
  Sex: Female
  Weight: 80 kg

DRUGS (6)
  1. HUMIRA [Suspect]
     Active Substance: ADALIMUMAB
     Indication: CROHN^S DISEASE
     Dosage: LOADING DOSE, DOSE WEEK 0
     Route: 058
     Dates: start: 20120301, end: 20120301
  2. ALPRAZOLAM. [Concomitant]
     Active Substance: ALPRAZOLAM
     Indication: SLEEP DISORDER
     Route: 048
  3. AMITRIPTYLINE [Concomitant]
     Active Substance: AMITRIPTYLINE
     Indication: DEPRESSION
     Route: 048
  4. HUMIRA [Suspect]
     Active Substance: ADALIMUMAB
     Route: 058
     Dates: end: 201508
  5. HUMIRA [Suspect]
     Active Substance: ADALIMUMAB
     Dosage: INDUCTION DOSE WEEK 1
     Route: 058
     Dates: start: 201203, end: 201203
  6. HUMIRA [Suspect]
     Active Substance: ADALIMUMAB
     Route: 058
     Dates: start: 201508

REACTIONS (9)
  - Crohn^s disease [Recovered/Resolved]
  - Crohn^s disease [Not Recovered/Not Resolved]
  - Injection site erythema [Recovered/Resolved]
  - Mitral valve prolapse [Not Recovered/Not Resolved]
  - Diabetes mellitus [Not Recovered/Not Resolved]
  - Blood pressure decreased [Recovered/Resolved]
  - Hypertension [Not Recovered/Not Resolved]
  - Dehydration [Unknown]
  - Injection site pruritus [Recovered/Resolved]

NARRATIVE: CASE EVENT DATE: 2015
